FAERS Safety Report 6680765-9 (Version None)
Quarter: 2010Q2

REPORT INFORMATION
  Report Type: 
  Country: None (occurrence: None)
  Receive Date: 20100414
  Receipt Date: 20100329
  Transmission Date: 20101027
  Serious: Yes (Death, Other)
  Sender: FDA-Public Use
  Company Number: PHHY2010JP20486

PATIENT
  Sex: Female
  Weight: 65 kg

DRUGS (34)
  1. ICL670A ICL+DISTAB [Suspect]
     Indication: IRON OVERLOAD
     Dosage: 1125MG DAILY
     Dates: start: 20091227, end: 20100125
  2. ICL670A ICL+DISTAB [Suspect]
     Dosage: 500MG DAILY
     Dates: start: 20100125, end: 20100226
  3. NEORAL [Concomitant]
     Dosage: 50 MG, UNK
     Route: 048
     Dates: start: 20091001
  4. NEORAL [Concomitant]
     Dosage: 100 MG, UNK
     Route: 048
     Dates: end: 20100226
  5. FAMOTIDINE [Concomitant]
     Indication: PROPHYLAXIS
     Dosage: 40 MG, UNK
     Route: 048
     Dates: start: 20090122, end: 20100212
  6. METHYLCOBALAMIN [Concomitant]
     Indication: RENAL DISORDER
     Dosage: 1500 UG, UNK
     Route: 048
     Dates: start: 20090219, end: 20100226
  7. LOXONIN [Suspect]
     Indication: RENAL DISORDER
     Dosage: 3 DF, (3 TABLET DAILY)
     Route: 048
     Dates: start: 20090219, end: 20100226
  8. THYMOGLOBULIN [Suspect]
     Dosage: 240 MG, UNK
     Route: 042
     Dates: start: 20100122, end: 20100126
  9. NEUROTROPIN [Concomitant]
     Indication: RENAL DISORDER
     Dosage: 16 DF, UNK
     Route: 048
     Dates: start: 20090219, end: 20100226
  10. BONZOL [Concomitant]
     Dosage: 400 MG, UNK
     Route: 048
     Dates: start: 20091023, end: 20100220
  11. LASIX [Concomitant]
     Indication: RENAL DISORDER
     Dosage: 20 MG, UNK
     Route: 048
     Dates: start: 20090509
  12. LASIX [Concomitant]
     Dosage: 40 MG, UNK
     Route: 048
     Dates: end: 20100226
  13. PREDNISOLONE [Concomitant]
     Dosage: 25 MG, UNK
     Route: 048
     Dates: start: 20091223
  14. PREDNISOLONE [Concomitant]
     Dosage: 85 MG, UNK
     Route: 048
  15. PREDNISOLONE [Concomitant]
     Dosage: 30 MG, UNK
     Route: 048
  16. PREDNISOLONE [Concomitant]
     Dosage: 15 MG, UNK
     Route: 048
  17. PREDNISOLONE [Concomitant]
     Dosage: 10 MG, UNK
     Route: 048
     Dates: end: 20100226
  18. METHYLPREDNISOLONE SODIUM SUCCINATE [Concomitant]
     Dosage: 125 MG, UNK
     Route: 042
     Dates: start: 20100122, end: 20100126
  19. PREDONINE [Concomitant]
     Dosage: 15 MG, UNK
     Route: 042
     Dates: start: 20100213, end: 20100214
  20. SAXIZON [Concomitant]
     Indication: PROPHYLAXIS
     Dosage: 200 MG, UNK
     Route: 042
     Dates: start: 20100107, end: 20100201
  21. CALONAL [Concomitant]
     Dosage: 400 MG, UNK
     Route: 048
     Dates: start: 20100122, end: 20100126
  22. CRAVIT [Concomitant]
     Indication: PROPHYLAXIS
     Dosage: 500 MG, UNK
     Route: 048
     Dates: start: 20100125, end: 20100212
  23. DIFLUCAN [Concomitant]
     Indication: PROPHYLAXIS
     Dosage: 200 MG, UNK
     Route: 048
     Dates: start: 20100122, end: 20100212
  24. GRAN [Concomitant]
     Dosage: 600 UG, UNK
     Route: 042
     Dates: start: 20100122
  25. GRAN [Concomitant]
     Dosage: 300 UG, UNK
     Dates: end: 20100217
  26. COTRIM [Concomitant]
     Dosage: 1 G, UNK
     Route: 048
     Dates: start: 20090122, end: 20100226
  27. PLATELETS [Concomitant]
     Dosage: 20 UNITS
     Dates: start: 20100107
  28. PLATELETS [Concomitant]
     Dosage: 10 UNITS
     Dates: start: 20100119
  29. PLATELETS [Concomitant]
     Dosage: 20 UNITS TWICE A WEEK
     Dates: start: 20100119, end: 20100127
  30. PLATELETS [Concomitant]
     Dosage: 20 UNITS EVERY TWO DAYS
     Dates: start: 20100127, end: 20100131
  31. PLATELETS [Concomitant]
     Dosage: 20 UNITS EVERY DAY
     Dates: start: 20100131, end: 20100201
  32. PLATELETS [Concomitant]
     Dosage: 20 UNITS TWICE  A WEEK
     Dates: start: 20100201, end: 20100212
  33. PLATELETS [Concomitant]
     Dosage: 20 UNITS EVERY TWO DAYS
     Dates: start: 20100212, end: 20100216
  34. PLATELETS [Concomitant]
     Dosage: 20 UNITS TWICE A WEEK
     Dates: start: 20100216, end: 20100224

REACTIONS (9)
  - DISSEMINATED INTRAVASCULAR COAGULATION [None]
  - DUODENAL ULCER HAEMORRHAGE [None]
  - FALL [None]
  - GASTRIC ULCER HAEMORRHAGE [None]
  - MULTI-ORGAN FAILURE [None]
  - PNEUMONIA [None]
  - RENAL IMPAIRMENT [None]
  - SUBDURAL HAEMATOMA [None]
  - WHITE BLOOD CELL COUNT DECREASED [None]
